FAERS Safety Report 18493502 (Version 5)
Quarter: 2021Q3

REPORT INFORMATION
  Report Type: Report from Study
  Country: US (occurrence: US)
  Receive Date: 20201112
  Receipt Date: 20210812
  Transmission Date: 20211014
  Serious: Yes (Hospitalization, Other)
  Sender: FDA-Public Use
  Company Number: US-ROCHE-2505357

PATIENT
  Age: 40 Year
  Sex: Male
  Weight: 84.6 kg

DRUGS (1)
  1. ATEZOLIZUMAB. [Suspect]
     Active Substance: ATEZOLIZUMAB
     Indication: ALVEOLAR SOFT PART SARCOMA
     Dosage: CYCLE = 21 DAYS OVER 60 MINUTES ON DAY 1?LAST ADMINISTERED ON 17/DEC/2019, 26/MAY/2020, 16/JUN/2020,
     Route: 042
     Dates: start: 20190511

REACTIONS (7)
  - Brain oedema [Recovering/Resolving]
  - Lymphocyte count decreased [Recovered/Resolved]
  - Hyperglycaemia [Recovered/Resolved]
  - Radiation necrosis [Recovered/Resolved with Sequelae]
  - Nervous system disorder [Unknown]
  - Vertigo [Recovered/Resolved]
  - Hemiparesis [Recovered/Resolved]

NARRATIVE: CASE EVENT DATE: 20191113
